FAERS Safety Report 7766355-5 (Version None)
Quarter: 2011Q3

REPORT INFORMATION
  Report Type: 
  Country: None (occurrence: None)
  Receive Date: 20110922
  Receipt Date: 20110913
  Transmission Date: 20111222
  Serious: No
  Sender: FDA-Public Use
  Company Number: US-BIOGENIDEC-2011BI028283

PATIENT
  Age: 25 Year
  Sex: Female

DRUGS (2)
  1. TYSABRI [Suspect]
     Indication: MULTIPLE SCLEROSIS
     Route: 042
     Dates: start: 20110601, end: 20110824
  2. BENADRYL [Concomitant]
     Indication: PREMEDICATION

REACTIONS (10)
  - ERYTHEMA [None]
  - EYE SWELLING [None]
  - URTICARIA [None]
  - DYSPNOEA [None]
  - MULTIPLE SCLEROSIS RELAPSE [None]
  - DRUG INEFFECTIVE [None]
  - EYE PRURITUS [None]
  - THROAT IRRITATION [None]
  - HYPERSENSITIVITY [None]
  - SWELLING [None]
